FAERS Safety Report 8157365-7 (Version None)
Quarter: 2012Q1

REPORT INFORMATION
  Report Type: 
  Country: None (occurrence: None)
  Receive Date: 20120222
  Receipt Date: 20110726
  Transmission Date: 20120608
  Serious: Yes (Hospitalization)
  Sender: FDA-Public Use
  Company Number: US-ROCHE-592905

PATIENT
  Sex: Female
  Weight: 117 kg

DRUGS (21)
  1. AVASTIN [Suspect]
     Indication: BREAST CANCER
     Dosage: TOTAL DOSE: 1770 MG; FORM: VIALS; LAST DOSE PRIOR TO EVENT ON 9 OCT 2008
     Route: 042
  2. PAXIL [Concomitant]
  3. KYTRIL [Concomitant]
  4. ESTRAVAL [Concomitant]
  5. CELL WISE [Concomitant]
  6. CARBOPLATIN [Suspect]
     Indication: BREAST CANCER
     Dosage: DOSAGE: 6 AUC; TOTAL DOSE 1130 MG; FORM VIAL; LAST DOSE PRIOR TO EVENT ON 9 OCT 08.
     Route: 042
  7. XANAX [Concomitant]
  8. AMITRIPTYLINE HCL [Concomitant]
  9. HERCEPTIN [Suspect]
     Indication: BREAST CANCER
     Dosage: TOTAL DOSE: 940 MG; FORM : VIALS; LAST DOSE PROR TO EVENT ON 9 OCT 08
     Route: 042
  10. KYTRIL [Concomitant]
  11. SARGRAMOSTIM [Suspect]
     Indication: PRODUCT USED FOR UNKNOWN INDICATION
     Route: 030
  12. NASONEX [Concomitant]
  13. LOMOTIL [Concomitant]
  14. GABAPENTIN [Concomitant]
  15. MULTI-VITAMIN [Concomitant]
  16. SYNTHROID [Concomitant]
  17. HERCEPTIN [Suspect]
     Dosage: DOSE: 708.
     Route: 042
  18. ADVAIR DISKUS 100/50 [Concomitant]
  19. ESTRAVAL [Concomitant]
  20. DOCETAXEL [Suspect]
     Indication: BREAST CANCER
     Dosage: FORM: VIALS; TOTAL DOSE: 172; LAST DOSE PRIOR TO EVENT ON 9 OCT 08
     Route: 042
  21. PHENERGAN [Concomitant]

REACTIONS (3)
  - DIVERTICULITIS [None]
  - PNEUMONIA [None]
  - CHEST PAIN [None]
